FAERS Safety Report 5967500-4 (Version None)
Quarter: 2008Q4

REPORT INFORMATION
  Report Type: 
  Country: None (occurrence: None)
  Receive Date: 20081125
  Receipt Date: 20081117
  Transmission Date: 20090506
  Serious: Yes (Death)
  Sender: FDA-Public Use
  Company Number: NL-PFIZER INC-2008080876

PATIENT
  Sex: Male
  Weight: 86 kg

DRUGS (2)
  1. INSPRA [Suspect]
     Indication: OEDEMA
     Route: 048
  2. INSPRA [Suspect]
     Indication: CARDIAC FAILURE

REACTIONS (2)
  - DEATH [None]
  - SWELLING FACE [None]
